FAERS Safety Report 5807553-7 (Version None)
Quarter: 2008Q3

REPORT INFORMATION
  Report Type: 
  Country: None (occurrence: None)
  Receive Date: 20080709
  Receipt Date: 20080709
  Transmission Date: 20090109
  Serious: Yes (Hospitalization)
  Sender: FDA-Public Use
  Company Number: None

PATIENT
  Age: 59 Year
  Sex: Female

DRUGS (1)
  1. LITHIUM CARBONATE [Suspect]
     Dosage: 900 MG EVERY DAY PO
     Route: 048
     Dates: start: 19930604, end: 20080118

REACTIONS (8)
  - AGITATION [None]
  - ANTIPSYCHOTIC DRUG LEVEL INCREASED [None]
  - ASTHENIA [None]
  - CONFUSIONAL STATE [None]
  - DIARRHOEA [None]
  - SEDATION [None]
  - SELF-MEDICATION [None]
  - TREMOR [None]
